FAERS Safety Report 15606507 (Version 1)
Quarter: 2018Q4

REPORT INFORMATION
  Report Type: Spontaneous
  Country: US (occurrence: US)
  Receive Date: 20181112
  Receipt Date: 20181112
  Transmission Date: 20190205
  Serious: No
  Sender: FDA-Public Use
  Company Number: US-TEVA-2018-US-971532

PATIENT
  Sex: Female

DRUGS (1)
  1. ACICLOVIR TEVA [Suspect]
     Active Substance: ACYCLOVIR
     Route: 065

REACTIONS (4)
  - Drug ineffective [Unknown]
  - Product substitution issue [Unknown]
  - Adverse event [Unknown]
  - Product taste abnormal [Unknown]
